FAERS Safety Report 7549690-5 (Version None)
Quarter: 2011Q2

REPORT INFORMATION
  Report Type: 
  Country: None (occurrence: None)
  Receive Date: 20110615
  Receipt Date: 20110601
  Transmission Date: 20111010
  Serious: Yes (Hospitalization)
  Sender: FDA-Public Use
  Company Number: US-JNJFOC-20101002516

PATIENT
  Sex: Female
  Weight: 42.2 kg

DRUGS (3)
  1. PREDNISONE [Concomitant]
  2. REMICADE [Suspect]
     Indication: COLITIS
     Route: 042
     Dates: start: 20100101
  3. CIMZIA [Suspect]
     Indication: COLITIS
     Dates: start: 20091101, end: 20100101

REACTIONS (1)
  - COLITIS [None]
